FAERS Safety Report 9221222 (Version 2)
Quarter: 2013Q2

REPORT INFORMATION
  Report Type: Spontaneous
  Country: US (occurrence: US)
  Receive Date: 20130410
  Receipt Date: 20130415
  Transmission Date: 20140414
  Serious: No
  Sender: FDA-Public Use
  Company Number: US-009507513-1304USA001705

PATIENT
  Age: 48 Year
  Sex: Female

DRUGS (1)
  1. MAXALT [Suspect]
     Indication: MIGRAINE
     Dosage: 10 MG, EVERY 4-6 HRS,PRN
     Route: 048

REACTIONS (4)
  - Visual impairment [Not Recovered/Not Resolved]
  - Expired drug administered [Unknown]
  - Nausea [Not Recovered/Not Resolved]
  - Abdominal discomfort [Not Recovered/Not Resolved]
